FAERS Safety Report 9591986 (Version 2)
Quarter: 2013Q4

REPORT INFORMATION
  Report Type: Spontaneous
  Country: US (occurrence: US)
  Receive Date: 20131004
  Receipt Date: 20131004
  Transmission Date: 20140711
  Serious: Yes (Hospitalization)
  Sender: FDA-Public Use
  Company Number: US-AMGEN-USASP2013047699

PATIENT
  Age: 50 Year
  Sex: Female

DRUGS (4)
  1. ENBREL [Suspect]
     Indication: RHEUMATOID ARTHRITIS
     Dosage: 50 MG, QWK
     Route: 065
     Dates: start: 19981127
  2. ENBREL [Suspect]
     Dosage: UNK
     Route: 065
  3. HUMIRA [Suspect]
     Indication: PRODUCT USED FOR UNKNOWN INDICATION
     Dosage: UNK
     Route: 065
  4. METHOTREXATE [Concomitant]
     Dosage: UNK

REACTIONS (12)
  - Gait disturbance [Recovered/Resolved]
  - White blood cell count decreased [Recovered/Resolved]
  - Cystitis [Recovered/Resolved]
  - Sepsis [Recovered/Resolved]
  - Kidney infection [Recovered/Resolved]
  - Pain in extremity [Not Recovered/Not Resolved]
  - Headache [Recovered/Resolved]
  - Foot deformity [Not Recovered/Not Resolved]
  - Migraine [Recovered/Resolved]
  - Nodule [Not Recovered/Not Resolved]
  - Injection site pain [Not Recovered/Not Resolved]
  - Injection site reaction [Not Recovered/Not Resolved]
